FAERS Safety Report 15395114 (Version 1)
Quarter: 2018Q3

REPORT INFORMATION
  Report Type: Spontaneous
  Country: US (occurrence: US)
  Receive Date: 20180918
  Receipt Date: 20180918
  Transmission Date: 20181010
  Serious: No
  Sender: FDA-Public Use
  Company Number: PHHY2018US096467

PATIENT
  Sex: Female

DRUGS (1)
  1. SYSTANE BALANCE [Suspect]
     Active Substance: PROPYLENE GLYCOL
     Indication: PRODUCT USED FOR UNKNOWN INDICATION
     Dosage: UNK
     Route: 047
     Dates: start: 201809, end: 20180910

REACTIONS (3)
  - Eye irritation [Recovering/Resolving]
  - Drug ineffective [Recovering/Resolving]
  - Foreign body sensation in eyes [Unknown]

NARRATIVE: CASE EVENT DATE: 201809
